FAERS Safety Report 10059710 (Version 1)
Quarter: 2014Q2

REPORT INFORMATION
  Report Type: Spontaneous
  Country: MY (occurrence: NL)
  Receive Date: 20140404
  Receipt Date: 20140404
  Transmission Date: 20141212
  Serious: Yes (Death, Other)
  Sender: FDA-Public Use
  Company Number: NL-JNJFOC-20140317355

PATIENT
  Sex: 0

DRUGS (2)
  1. METHYLPHENIDATE HYDROCHLORIDE [Suspect]
     Indication: MAJOR DEPRESSION
     Dosage: 5MG TWICE DAILY(8AM AND 12 NOON)
     Route: 048
  2. MIRTAZAPINE [Suspect]
     Indication: MAJOR DEPRESSION
     Dosage: 30 MG AT 10 PM
     Route: 065

REACTIONS (12)
  - Death [Fatal]
  - Psychotic disorder [Unknown]
  - Convulsion [Unknown]
  - Tremor [Unknown]
  - Insomnia [Unknown]
  - Agitation [Unknown]
  - Pyrexia [Unknown]
  - Pain [Unknown]
  - Gastric disorder [Unknown]
  - Dizziness [Unknown]
  - Confusional state [Unknown]
  - Vomiting [Unknown]
